FAERS Safety Report 21387699 (Version 1)
Quarter: 2022Q3

REPORT INFORMATION
  Report Type: Spontaneous
  Country: GB (occurrence: GB)
  Receive Date: 20220928
  Receipt Date: 20220928
  Transmission Date: 20221027
  Serious: Yes (Hospitalization, Disabling, Other)
  Sender: FDA-Public Use
  Company Number: None

PATIENT
  Age: 8 Year
  Sex: Female
  Weight: 23.35 kg

DRUGS (36)
  1. DEXAMETHASONE [Suspect]
     Active Substance: DEXAMETHASONE
     Indication: Product used for unknown indication
     Dosage: UNK
     Route: 065
  2. DEXAMETHASONE [Suspect]
     Active Substance: DEXAMETHASONE
     Dosage: 1.6 MILLIGRAM, QD
     Route: 048
     Dates: start: 20210215, end: 20210221
  3. DEXAMETHASONE [Suspect]
     Active Substance: DEXAMETHASONE
     Dosage: 9.2 MILLIGRAM, QD
     Route: 048
     Dates: start: 20200207, end: 20200221
  4. DEXAMETHASONE [Suspect]
     Active Substance: DEXAMETHASONE
     Dosage: VARIABLE 4MG BD WEANED TO 0.5MG SECOND DAILY;
     Route: 048
     Dates: start: 20191101, end: 20200221
  5. DEXAMETHASONE [Suspect]
     Active Substance: DEXAMETHASONE
     Dosage: 3.5 MILLIGRAM
     Route: 048
     Dates: start: 20210210
  6. DEXAMETHASONE [Suspect]
     Active Substance: DEXAMETHASONE
     Dosage: 3.5 MILLIGRAM, BID
     Route: 048
     Dates: start: 20200212
  7. DEXAMETHASONE [Suspect]
     Active Substance: DEXAMETHASONE
     Dosage: 4.6 UNK
  8. DEXAMETHASONE [Suspect]
     Active Substance: DEXAMETHASONE
     Dosage: 0.5 MILLIGRAM
  9. EVEROLIMUS [Suspect]
     Active Substance: EVEROLIMUS
     Indication: Brain stem glioma
     Dosage: MONDAY/WEDNESDAY/FRIDAY
     Route: 048
     Dates: start: 20200212
  10. EVEROLIMUS [Suspect]
     Active Substance: EVEROLIMUS
     Dosage: 5 MG ON MONDAY, WEDNESDAY AND FRIDAY
     Route: 048
     Dates: start: 20200207
  11. EVEROLIMUS [Suspect]
     Active Substance: EVEROLIMUS
     Dosage: 5 MG ON MONDAY,WEDNESDAY AND FRIDAY AND 2.5 MG ON TUESDAY,THURSDAY,SATURDAY AND SUNDAY;
     Route: 048
     Dates: start: 20190717, end: 20191014
  12. EVEROLIMUS [Suspect]
     Active Substance: EVEROLIMUS
     Dosage: TUESDAY/THURSDAY/SATURDAY/SUNDAY
     Route: 048
     Dates: start: 20200212
  13. EVEROLIMUS [Suspect]
     Active Substance: EVEROLIMUS
     Dosage: 5 MG ON MONDAY, WEDNESDAY AND FRIDAY AND 2.5 MG ON TUESDAY, THURSDAY, SATURDAY AND SUNDAY;
     Route: 048
     Dates: start: 20191001
  14. EVEROLIMUS [Suspect]
     Active Substance: EVEROLIMUS
     Dosage: 5 MG, 1X/DAY M/W/F
     Route: 048
     Dates: start: 20210207
  15. LANSOPRAZOLE [Suspect]
     Active Substance: LANSOPRAZOLE
     Indication: Gastrooesophageal reflux disease
     Dosage: UNK
     Route: 065
  16. LANSOPRAZOLE [Suspect]
     Active Substance: LANSOPRAZOLE
     Indication: Product used for unknown indication
  17. LOPERAMIDE [Suspect]
     Active Substance: LOPERAMIDE
     Indication: Diarrhoea
     Route: 065
  18. ACETAMINOPHEN [Suspect]
     Active Substance: ACETAMINOPHEN
     Indication: Product used for unknown indication
     Dosage: PM;
     Route: 048
  19. RANITIDINE [Suspect]
     Active Substance: RANITIDINE
     Indication: Gastrooesophageal reflux disease
     Dosage: 50 MILLIGRAM
     Route: 048
     Dates: start: 20191018
  20. RANITIDINE [Suspect]
     Active Substance: RANITIDINE
     Dosage: UNK
     Route: 065
  21. RANITIDINE [Suspect]
     Active Substance: RANITIDINE
     Dosage: 50 MG, BID
     Dates: end: 20191018
  22. VANDETANIB [Suspect]
     Active Substance: VANDETANIB
     Indication: Brain stem glioma
     Dosage: 54 MILLIGRAM/SQ. METER
     Route: 048
     Dates: start: 20200212, end: 20200302
  23. VANDETANIB [Suspect]
     Active Substance: VANDETANIB
     Dosage: 65 MILLIGRAM/SQ. METER, QD
     Route: 048
     Dates: start: 20200316, end: 20200420
  24. VANDETANIB [Suspect]
     Active Substance: VANDETANIB
     Dosage: 100 MILLIGRAM
     Route: 048
     Dates: start: 20191009, end: 20191014
  25. VANDETANIB [Suspect]
     Active Substance: VANDETANIB
     Dosage: 100 MG, QOD (65 MG/M2)
     Route: 048
     Dates: start: 20191018, end: 20200207
  26. COTRIMOXAZOLE [Concomitant]
     Active Substance: SULFAMETHOXAZOLE\TRIMETHOPRIM
     Indication: Product used for unknown indication
     Dosage: 360 MILLIGRAM, TWO TIMES A DAY ON SAT/SUN ONLY;
     Route: 048
  27. COTRIMOXAZOLE [Concomitant]
     Active Substance: SULFAMETHOXAZOLE\TRIMETHOPRIM
     Dosage: 360 MG BD ON SAT/SUN ONLY
  28. RANITIDINE [Concomitant]
     Active Substance: RANITIDINE
     Indication: Product used for unknown indication
     Dosage: 50 MILLIGRAM, TWO TIMES A DAY
     Route: 065
     Dates: start: 20191018
  29. DEXAMETHASONE [Concomitant]
     Active Substance: DEXAMETHASONE
     Indication: Product used for unknown indication
  30. AFINITOR [Suspect]
     Active Substance: EVEROLIMUS
     Indication: Brain stem glioma
     Dosage: UNK (5 MG MONDAY/WEDNESDAY/FRIDAY AND 2.5 MG TUESDAY/THURSDAY/SATURDAY/SUNDAY)
     Dates: start: 20190718, end: 20200207
  31. AFINITOR [Suspect]
     Active Substance: EVEROLIMUS
     Dosage: 5 MG MONDAY/WEDNESDAY/FRIDAY AND 2.5 MG TUESDAY/THURSDAY/SATURDAY/SUNDAY
     Dates: start: 20200213
  32. AFINITOR [Suspect]
     Active Substance: EVEROLIMUS
     Dosage: 5 MG MONDAY/WEDNESDAY/FRIDAY AND 2.5 MG TUESDAY/THURSDAY/SATURDAY/SUNDAY
  33. AFINITOR [Suspect]
     Active Substance: EVEROLIMUS
     Dosage: 2.5 MG, ON TUESDAY, THURSDAY, SATURDAY AND SUNDAY
     Dates: start: 20190718, end: 20200207
  34. AFINITOR [Suspect]
     Active Substance: EVEROLIMUS
     Dosage: 5 MG MONDAY/WEDNESDAY/FRIDAY AND 2.5 MG TUESDAY/THURSDAY/SATURDAY/SUNDAY
     Dates: start: 20190717, end: 20200207
  35. AFINITOR [Suspect]
     Active Substance: EVEROLIMUS
     Dosage: 5 MG MONDAY/WEDNESDAY/FRIDAY AND 2.5 MG TUESDAY/THURSDAY/SATURDAY/SUNDAY
     Dates: end: 20200212
  36. AFINITOR [Suspect]
     Active Substance: EVEROLIMUS
     Dosage: UNK (5 MG MONDAY TO SATURDAY AND 2.5 MG SUNDAY)
     Dates: start: 20190717, end: 20191014

REACTIONS (36)
  - Abdominal distension [Recovered/Resolved]
  - Facial paralysis [Unknown]
  - Electrocardiogram QT prolonged [Recovered/Resolved]
  - Neutrophil count decreased [Recovered/Resolved]
  - Facial paralysis [Recovered/Resolved]
  - Brain stem glioma [Not Recovered/Not Resolved]
  - Hypophagia [Not Recovered/Not Resolved]
  - Myoclonus [Recovered/Resolved]
  - Hypertension [Not Recovered/Not Resolved]
  - Off label use [Unknown]
  - Blood cholesterol increased [Not Recovered/Not Resolved]
  - Disease progression [Unknown]
  - Flatulence [Recovered/Resolved]
  - Blood cholesterol increased [Not Recovered/Not Resolved]
  - Reflux gastritis [Recovered/Resolved]
  - Ocular hyperaemia [Recovered/Resolved]
  - Alanine aminotransferase increased [Recovered/Resolved]
  - Neutrophil count decreased [Recovered/Resolved]
  - Lymphocyte count decreased [Not Recovered/Not Resolved]
  - Stomatitis [Recovered/Resolved]
  - Hypophosphataemia [Recovered/Resolved]
  - Product use in unapproved indication [Unknown]
  - Blood triglycerides increased [Unknown]
  - Blood creatinine increased [Recovered/Resolved]
  - Malignant neoplasm progression [Unknown]
  - Hemiparesis [Recovered/Resolved]
  - Blood creatinine increased [Unknown]
  - Ataxia [Recovered/Resolved]
  - White blood cell count decreased [Not Recovered/Not Resolved]
  - Ataxia [Recovered/Resolved]
  - Facial paralysis [Unknown]
  - Medication error [Unknown]
  - Mucosal inflammation [Recovered/Resolved]
  - Blood cholesterol increased [Recovered/Resolved]
  - Gastrooesophageal reflux disease [Recovered/Resolved]
  - Brain stem glioma [Unknown]

NARRATIVE: CASE EVENT DATE: 20190111
